FAERS Safety Report 4785367-7 (Version None)
Quarter: 2005Q4

REPORT INFORMATION
  Report Type: 
  Country: None (occurrence: None)
  Receive Date: 20051003
  Receipt Date: 20050921
  Transmission Date: 20060501
  Serious: Yes (Hospitalization, Disabling, Other)
  Sender: FDA-Public Use
  Company Number: DE-BRISTOL-MYERS SQUIBB COMPANY-13121124

PATIENT
  Age: 57 Year
  Sex: Male

DRUGS (3)
  1. MITOMYCIN [Suspect]
     Indication: ANAL CANCER
     Route: 042
     Dates: start: 20020527, end: 20020625
  2. FLUOROURACIL [Concomitant]
     Indication: ANAL CANCER
     Dates: start: 20020527, end: 20020628
  3. RADIATION THERAPY [Concomitant]
     Indication: ANAL CANCER

REACTIONS (2)
  - ILEUS [None]
  - PELVIC FIBROSIS [None]
